FAERS Safety Report 4828203-2 (Version None)
Quarter: 2005Q4

REPORT INFORMATION
  Report Type: 
  Country: None (occurrence: None)
  Receive Date: 20051115
  Receipt Date: 20051109
  Transmission Date: 20060501
  Serious: Yes (Other)
  Sender: FDA-Public Use
  Company Number: J200503511

PATIENT
  Age: 79 Year
  Sex: Female

DRUGS (2)
  1. SAWACILLIN [Suspect]
     Indication: SYPHILIS
     Dosage: 250MG THREE TIMES PER DAY
     Route: 048
     Dates: start: 20050607, end: 20050921
  2. LENDORMIN [Concomitant]
     Indication: INSOMNIA
     Dosage: .25MG FOUR TIMES PER DAY
     Route: 048
     Dates: start: 20040426

REACTIONS (9)
  - ANOREXIA [None]
  - FATIGUE [None]
  - LUPUS-LIKE SYNDROME [None]
  - NASOPHARYNGITIS [None]
  - PHARYNGOLARYNGEAL PAIN [None]
  - PYREXIA [None]
  - RASH [None]
  - RHINORRHOEA [None]
  - SYSTEMIC LUPUS ERYTHEMATOSUS RASH [None]
